FAERS Safety Report 11908232 (Version 3)
Quarter: 2016Q2

REPORT INFORMATION
  Report Type: Spontaneous
  Country: US (occurrence: US)
  Receive Date: 20160111
  Receipt Date: 20160519
  Transmission Date: 20160815
  Serious: Yes (Other)
  Sender: FDA-Public Use
  Company Number: US-PFIZER INC-2015461859

PATIENT
  Age: 69 Year
  Sex: Male

DRUGS (3)
  1. SUTENT [Suspect]
     Active Substance: SUNITINIB MALATE
     Indication: RENAL CANCER
     Dosage: 50 MG, CYCLIC (1 CAPSULE DAILY FOR 4 WEEKS ON 2, OR 1 CAPSULE DAILY AT DAY 1-DAY 30 EVERY 42 DAYS)
     Route: 048
     Dates: start: 20121115
  2. SUTENT [Suspect]
     Active Substance: SUNITINIB MALATE
     Dosage: 50 MG, CYCLIC (1 D-30D Q 42D)
     Route: 048
     Dates: start: 20131114
  3. SUTENT [Suspect]
     Active Substance: SUNITINIB MALATE
     Dosage: 50 MG, CYCLIC (1 CAP DAILY D1-D26 Q42D)
     Route: 048
     Dates: start: 20121115

REACTIONS (4)
  - Squamous cell carcinoma [Unknown]
  - Limb injury [Unknown]
  - Tooth disorder [Unknown]
  - Second primary malignancy [Unknown]

NARRATIVE: CASE EVENT DATE: 2015
